FAERS Safety Report 20405335 (Version 1)
Quarter: 2022Q1

REPORT INFORMATION
  Report Type: Spontaneous
  Country: JP (occurrence: JP)
  Receive Date: 20220131
  Receipt Date: 20220131
  Transmission Date: 20220423
  Serious: Yes (Hospitalization, Other)
  Sender: FDA-Public Use
  Company Number: None

PATIENT
  Age: 81 Year
  Sex: Female
  Weight: 51 kg

DRUGS (6)
  1. BEVACIZUMAB [Suspect]
     Active Substance: BEVACIZUMAB
     Indication: Gastrointestinal neoplasm
     Dosage: 340 MG, 1X/DAY
     Route: 042
     Dates: start: 20211004, end: 20211004
  2. IRINOTECAN HYDROCHLORIDE [Suspect]
     Active Substance: IRINOTECAN HYDROCHLORIDE
     Indication: Gastrointestinal neoplasm
     Dosage: 200 MG, 1X
     Route: 042
     Dates: start: 20211004, end: 20211004
  3. GIMERACIL\OTERACIL\TEGAFUR [Suspect]
     Active Substance: GIMERACIL\OTERACIL\TEGAFUR
     Indication: Gastrointestinal neoplasm
     Dosage: 40MG, 2X
     Route: 048
     Dates: start: 20211004, end: 20211008
  4. FUROSEMIDE [Concomitant]
     Active Substance: FUROSEMIDE
  5. BIO-THREE [Concomitant]
     Active Substance: HERBALS
  6. METHYLCOBALAMIN [Concomitant]
     Active Substance: METHYLCOBALAMIN

REACTIONS (4)
  - Febrile neutropenia [Recovered/Resolved]
  - Escherichia bacteraemia [Recovered/Resolved]
  - White blood cell count decreased [Recovered/Resolved]
  - Platelet count decreased [Recovered/Resolved]

NARRATIVE: CASE EVENT DATE: 20211011
